FAERS Safety Report 18511394 (Version 3)
Quarter: 2020Q4

REPORT INFORMATION
  Report Type: Other
  Country: CA (occurrence: CA)
  Receive Date: 20201117
  Receipt Date: 20201218
  Transmission Date: 20210114
  Serious: Yes (Other)
  Sender: FDA-Public Use
  Company Number: CA-CELLTRION INC.-2020CA031309

PATIENT

DRUGS (137)
  1. METHOTREXATE. [Suspect]
     Active Substance: METHOTREXATE
     Indication: RHEUMATOID ARTHRITIS
     Dosage: 25.0 MILLIGRAM, 1 EVERY 1 WEEKS
     Route: 065
  2. SODIUM AUROTHIOMALATE [Suspect]
     Active Substance: GOLD SODIUM THIOMALATE
     Indication: PRODUCT USED FOR UNKNOWN INDICATION
     Dosage: UNK
     Route: 030
  3. CODEINE [Concomitant]
     Active Substance: CODEINE
     Dosage: UNK
     Route: 065
  4. CODEINE [Concomitant]
     Active Substance: CODEINE
     Dosage: UNK
  5. DARIFENACIN HYDROBROMIDE. [Concomitant]
     Active Substance: DARIFENACIN HYDROBROMIDE
     Dosage: UNK
     Route: 065
  6. DESOXIMETASONE. [Concomitant]
     Active Substance: DESOXIMETASONE
     Dosage: UNK
     Route: 065
  7. DIPHENHYDRAMINE. [Concomitant]
     Active Substance: DIPHENHYDRAMINE
     Dosage: UNK
     Route: 065
  8. DIPHENHYDRAMINE HYDROCHLORIDE. [Concomitant]
     Active Substance: DIPHENHYDRAMINE HYDROCHLORIDE
     Indication: PRODUCT USED FOR UNKNOWN INDICATION
     Dosage: UNK, AS REQUIRED
  9. DYCLONINE HYDROCHLORIDE [Concomitant]
     Active Substance: DYCLONINE HYDROCHLORIDE
     Indication: PRODUCT USED FOR UNKNOWN INDICATION
     Dosage: UNK
  10. KENALOG [Concomitant]
     Active Substance: TRIAMCINOLONE ACETONIDE
     Dosage: 40.0 MILLIGRAM
     Route: 014
  11. RITUXAN [Concomitant]
     Active Substance: RITUXIMAB
     Dosage: UNK
     Route: 042
  12. SYNTHROID [Concomitant]
     Active Substance: LEVOTHYROXINE SODIUM
  13. URISPAS [Concomitant]
     Active Substance: FLAVOXATE HYDROCHLORIDE
     Dosage: 200.0 MILLIGRAM
     Route: 065
  14. VAGIFEM [Concomitant]
     Active Substance: ESTRADIOL
     Dosage: UNK
     Route: 067
  15. TRIAMCINOLONE ACETONIDE. [Concomitant]
     Active Substance: TRIAMCINOLONE ACETONIDE
     Dosage: 40 MILLIGRAM
     Route: 014
  16. RITUXIMAB (UNKNOWN) [Suspect]
     Active Substance: RITUXIMAB
     Indication: PRODUCT USED FOR UNKNOWN INDICATION
     Dosage: UNK
     Route: 065
  17. HYDROXYCHLOROQUINE [Suspect]
     Active Substance: HYDROXYCHLOROQUINE
     Indication: RHEUMATOID ARTHRITIS
     Dosage: 200.0 MILLIGRAM, 2 EVERY 1 DAYS
     Route: 065
  18. METHOTREXATE. [Suspect]
     Active Substance: METHOTREXATE
     Dosage: 25.0 MILLIGRAM, 4 EVERY 1 WEEKS
     Route: 067
  19. REMICADE [Suspect]
     Active Substance: INFLIXIMAB
     Dosage: 300.0 MILLIGRAM, 1 EVERY 1 MONTHS
     Route: 042
  20. ATIVAN [Concomitant]
     Active Substance: LORAZEPAM
     Dosage: 1 GRAM
     Route: 065
  21. DYCLONE [Concomitant]
     Active Substance: DYCLONINE HYDROCHLORIDE
     Dosage: UNK
     Route: 065
  22. ENABLEX [Concomitant]
     Active Substance: DARIFENACIN HYDROBROMIDE
     Dosage: UNK, AS REQUIRED
     Route: 065
  23. HYDROMORPHONE [Concomitant]
     Active Substance: HYDROMORPHONE
     Route: 065
  24. LOPERAMIDE [Concomitant]
     Active Substance: LOPERAMIDE
     Dosage: UNK, 2 EVERY 1 DAYS
     Route: 065
  25. ORPHENADRINE [ORPHENADRINE HYDROCHLORIDE] [Concomitant]
     Dosage: UNK, 2 EVERY 1 DAYS
     Route: 065
  26. PANTOPRAZOLE [Concomitant]
     Active Substance: PANTOPRAZOLE
     Dosage: UNK
  27. SYNTHROID [Concomitant]
     Active Substance: LEVOTHYROXINE SODIUM
     Dosage: UNK
     Route: 065
  28. TRIMETHOPRIM. [Concomitant]
     Active Substance: TRIMETHOPRIM
     Route: 065
  29. ENBREL [Suspect]
     Active Substance: ETANERCEPT
     Dosage: 25.0 MILLIGRAM, 2 EVERY 1 WEEKS
     Route: 058
  30. HYDROXYCHLOROQUINE SULFATE. [Suspect]
     Active Substance: HYDROXYCHLOROQUINE SULFATE
     Dosage: 200.0 GBQ, 2 EVERY 1 DAYS
     Route: 065
  31. ORENCIA [Suspect]
     Active Substance: ABATACEPT
     Indication: RHEUMATOID ARTHRITIS
     Dosage: 750.0 MILLIGRAM, 1 EVERY 1 MONTHS
     Route: 042
  32. ANAKINRA [Concomitant]
     Active Substance: ANAKINRA
     Dosage: 100.0 MILLIGRAM
     Route: 065
  33. DILAUDID [Concomitant]
     Active Substance: HYDROMORPHONE HYDROCHLORIDE
     Dosage: 4.0 MILLIGRAM
  34. DIPHENHYDRAMINE. [Concomitant]
     Active Substance: DIPHENHYDRAMINE
     Dosage: UNK
     Route: 065
  35. DYCLONINE HYDROCHLORIDE [Concomitant]
     Active Substance: DYCLONINE HYDROCHLORIDE
     Dosage: UNK
  36. ENABLEX [Concomitant]
     Active Substance: DARIFENACIN HYDROBROMIDE
     Dosage: UNK
     Route: 065
  37. FUROSEMIDE. [Concomitant]
     Active Substance: FUROSEMIDE
     Dosage: 40.0 MILLIGRAM
     Route: 065
  38. HYDROMORPHONE [Concomitant]
     Active Substance: HYDROMORPHONE
     Dosage: UNK
     Route: 065
  39. KADIAN [Concomitant]
     Active Substance: MORPHINE SULFATE
     Dosage: UNK
     Route: 065
  40. KENALOG [Concomitant]
     Active Substance: TRIAMCINOLONE ACETONIDE
     Dosage: 40 MILLIGRAM
     Route: 014
  41. LASIX [Concomitant]
     Active Substance: FUROSEMIDE
     Dosage: UNK
     Route: 065
  42. LASIX [Concomitant]
     Active Substance: FUROSEMIDE
     Dosage: 40.0 MILLIGRAM, 3 EVERY 1 DAYS
     Route: 065
  43. LEFLUNOMIDE. [Concomitant]
     Active Substance: LEFLUNOMIDE
     Dosage: UNK
  44. PANTOLOC [PANTOPRAZOLE] [Concomitant]
     Active Substance: PANTOPRAZOLE SODIUM
     Indication: PRODUCT USED FOR UNKNOWN INDICATION
     Dosage: UNK
     Route: 065
  45. PLANTAGO OVATA [Concomitant]
     Active Substance: HERBALS\PLANTAGO OVATA LEAF
     Dosage: UNK
     Route: 065
  46. RESTASIS [Concomitant]
     Active Substance: CYCLOSPORINE
     Dosage: UNK
     Route: 065
  47. PANTOPRAZOLE [Concomitant]
     Active Substance: PANTOPRAZOLE
  48. ENBREL [Suspect]
     Active Substance: ETANERCEPT
     Indication: RHEUMATOID ARTHRITIS
     Dosage: 25.0 MILLIGRAM, 2 EVERY 1 WEEKS
     Route: 058
  49. HUMIRA [Suspect]
     Active Substance: ADALIMUMAB
     Dosage: 200 MILLIGRAM, 1 EVERY 1 DAYS
     Route: 058
  50. HYDROXYCHLOROQUINE /00072603/ [Suspect]
     Active Substance: HYDROXYCHLOROQUINE SULFATE
     Indication: RHEUMATOID ARTHRITIS
     Dosage: 40.0 MILLIGRAM
     Route: 065
  51. HYDROXYCHLOROQUINE SULFATE. [Suspect]
     Active Substance: HYDROXYCHLOROQUINE SULFATE
     Indication: RHEUMATOID ARTHRITIS
     Dosage: 200.0 MILLIGRAM, 2 EVERY 1 DAYS
     Route: 065
  52. METHOTREXATE. [Suspect]
     Active Substance: METHOTREXATE
     Dosage: 25.0 MILLIGRAM, 1 EVERY 1 WEEKS
     Route: 065
  53. PLAQUENIL [Suspect]
     Active Substance: HYDROXYCHLOROQUINE SULFATE
     Indication: RHEUMATOID ARTHRITIS
     Dosage: 200.0 MILLIGRAM, 2 EVERY 1 DAYS
     Route: 065
  54. TOCILIZUMAB. [Suspect]
     Active Substance: TOCILIZUMAB
     Indication: RHEUMATOID ARTHRITIS
     Dosage: UNK
     Route: 065
  55. ANAKINRA [Concomitant]
     Active Substance: ANAKINRA
     Dosage: UNK
  56. ATIVAN [Concomitant]
     Active Substance: LORAZEPAM
     Dosage: 1.0 MILLIGRAM
  57. DESOXIMETASONE. [Concomitant]
     Active Substance: DESOXIMETASONE
     Dosage: UNK
     Route: 048
  58. DESOXIMETASONE. [Concomitant]
     Active Substance: DESOXIMETASONE
     Dosage: UNK
     Route: 014
  59. DESOXIMETASONE. [Concomitant]
     Active Substance: DESOXIMETASONE
     Dosage: UNK
  60. MORPHINE SULFATE. [Concomitant]
     Active Substance: MORPHINE SULFATE
     Dosage: UNK
     Route: 065
  61. OMNARIS [Concomitant]
     Active Substance: CICLESONIDE
     Dosage: UNK
     Route: 065
  62. OXYNEO [Concomitant]
     Active Substance: OXYCODONE
     Route: 065
  63. TRIAMCINOLONE ACETONIDE. [Concomitant]
     Active Substance: TRIAMCINOLONE ACETONIDE
     Dosage: 40.0 MILLIGRAM
     Route: 014
  64. VAGIFEM [Concomitant]
     Active Substance: ESTRADIOL
     Dosage: UNK
     Route: 067
  65. ARAVA [Suspect]
     Active Substance: LEFLUNOMIDE
     Dosage: 20.0 MILLIGRAM
     Route: 065
  66. ENBREL [Suspect]
     Active Substance: ETANERCEPT
     Dosage: 25.0 MILLIGRAM, 2 EVERY 1 WEEKS
     Route: 058
  67. HYDROXYCHLOROQUINE SULFATE. [Suspect]
     Active Substance: HYDROXYCHLOROQUINE SULFATE
     Indication: PRODUCT USED FOR UNKNOWN INDICATION
     Dosage: 200.0 MILLIGRAM, 2 EVERY 1 DAYS
     Route: 065
  68. REMICADE [Suspect]
     Active Substance: INFLIXIMAB
     Indication: RHEUMATOID ARTHRITIS
     Dosage: 200 MILLIGRAM
     Route: 042
  69. XELJANZ [Suspect]
     Active Substance: TOFACITINIB CITRATE
     Indication: RHEUMATOID ARTHRITIS
     Dosage: UNK
     Route: 065
  70. ACETAMINOPHEN. [Concomitant]
     Active Substance: ACETAMINOPHEN
     Dosage: UNK
     Route: 065
  71. ANAKINRA [Concomitant]
     Active Substance: ANAKINRA
     Dosage: 100.0 MILLIGRAM
  72. BENADRYL [Concomitant]
     Active Substance: DIPHENHYDRAMINE HYDROCHLORIDE
     Dosage: UNK
     Route: 065
  73. CORTISONE [Concomitant]
     Active Substance: CORTISONE
     Dosage: UNK
     Route: 030
  74. DEXAMETHASONE. [Concomitant]
     Active Substance: DEXAMETHASONE
     Route: 065
  75. DILAUDID [Concomitant]
     Active Substance: HYDROMORPHONE HYDROCHLORIDE
     Indication: ANALGESIC THERAPY
     Dosage: 4.0 MILLIGRAM, 4 EVERY 1 DAYS
     Route: 065
  76. FUROSEMIDE. [Concomitant]
     Active Substance: FUROSEMIDE
     Dosage: UNK
     Route: 065
  77. KENALOG [Concomitant]
     Active Substance: TRIAMCINOLONE ACETONIDE
  78. LEFLUNOMIDE. [Concomitant]
     Active Substance: LEFLUNOMIDE
     Route: 065
  79. ORENCIA [Concomitant]
     Active Substance: ABATACEPT
     Route: 042
  80. RITUXAN [Concomitant]
     Active Substance: RITUXIMAB
     Dosage: 1000.0 MILLIGRAM
     Route: 042
  81. TRIMETHOPRIM. [Concomitant]
     Active Substance: TRIMETHOPRIM
     Route: 065
  82. DARIFENACIN HYDROBROMIDE. [Concomitant]
     Active Substance: DARIFENACIN HYDROBROMIDE
     Route: 065
  83. LOPERAMIDE [Concomitant]
     Active Substance: LOPERAMIDE
     Dosage: 2 MILLIGRAM, 2 EVERY 1 DAYS
     Route: 065
  84. HYDROXYCHLOROQUINE SULFATE. [Suspect]
     Active Substance: HYDROXYCHLOROQUINE SULFATE
     Dosage: UNK
     Route: 065
  85. HYDROXYCHLOROQUINE SULFATE. [Suspect]
     Active Substance: HYDROXYCHLOROQUINE SULFATE
     Dosage: 40 MILLIGRAM
     Route: 065
  86. METHOTREXATE. [Suspect]
     Active Substance: METHOTREXATE
     Indication: RHEUMATOID ARTHRITIS
     Dosage: 25.0 MILLIGRAM, 1 EVERY 1 WEEKS
     Route: 065
  87. REMICADE [Suspect]
     Active Substance: INFLIXIMAB
     Indication: RHEUMATOID ARTHRITIS
     Dosage: 300.0 MILLIGRAM, 1 EVERY 1 MONTHS
     Route: 042
  88. SODIUM AUROTHIOMALATE [Suspect]
     Active Substance: GOLD SODIUM THIOMALATE
     Indication: PRODUCT USED FOR UNKNOWN INDICATION
     Dosage: UNK
     Route: 065
  89. ABATACEPT [Concomitant]
     Active Substance: ABATACEPT
     Dosage: UNK
  90. ACETAMINOPHEN. [Concomitant]
     Active Substance: ACETAMINOPHEN
  91. BENADRYL [Concomitant]
     Active Substance: DIPHENHYDRAMINE HYDROCHLORIDE
     Dosage: UNK, AS REQUIRED
  92. DARIFENACIN. [Concomitant]
     Active Substance: DARIFENACIN
     Indication: PRODUCT USED FOR UNKNOWN INDICATION
     Dosage: UNK
     Route: 065
  93. DESOXIMETASONE. [Concomitant]
     Active Substance: DESOXIMETASONE
     Dosage: UNK
     Route: 065
  94. FUROSEMIDE. [Concomitant]
     Active Substance: FUROSEMIDE
     Dosage: 40.0 MILLIGRAM
     Route: 065
  95. FUROSEMIDE. [Concomitant]
     Active Substance: FUROSEMIDE
     Dosage: 40.0 MILLIGRAM, 3 EVERY 1 DAYS
     Route: 065
  96. LOPERAMIDE [Concomitant]
     Active Substance: LOPERAMIDE
     Dosage: UNK
     Route: 065
  97. NORFLEX [Concomitant]
     Active Substance: ORPHENADRINE CITRATE
     Dosage: UNK, 2 EVERY 1 DAYS
     Route: 065
  98. OMNARIS [Concomitant]
     Active Substance: CICLESONIDE
     Route: 065
  99. ORPHENADRINE [ORPHENADRINE HYDROCHLORIDE] [Concomitant]
     Dosage: 1.0 DOSAGE FORM, 2 EVERY 1 DAYS
     Route: 065
  100. OXYNEO [Concomitant]
     Active Substance: OXYCODONE
     Route: 065
  101. PANTOPRAZOLE SODIUM ANHYDROUS [Concomitant]
     Active Substance: PANTOPRAZOLE SODIUM ANHYDROUS
     Dosage: UNK
     Route: 065
  102. RESTASIS [Concomitant]
     Active Substance: CYCLOSPORINE
  103. VAGIFEM [Concomitant]
     Active Substance: ESTRADIOL
     Dosage: UNK
     Route: 065
  104. RITUXIMAB (UNKNOWN) [Suspect]
     Active Substance: RITUXIMAB
     Dosage: 1000.0 MILLIGRAM
     Route: 042
  105. ACTEMRA [Suspect]
     Active Substance: TOCILIZUMAB
     Indication: RHEUMATOID ARTHRITIS
     Dosage: UNK
     Route: 042
  106. ARAVA [Suspect]
     Active Substance: LEFLUNOMIDE
     Indication: RHEUMATOID ARTHRITIS
     Dosage: 20.0 MILLIGRAM, 1 EVERY 1 DAYS
     Route: 065
  107. GOLD [Suspect]
     Active Substance: GOLD
     Indication: RHEUMATOID ARTHRITIS
     Dosage: UNK
     Route: 065
  108. HUMIRA [Suspect]
     Active Substance: ADALIMUMAB
     Dosage: 40.0 MILLIGRAM, 1 EVERY 2 WEEKS
     Route: 058
  109. HYDROXYCHLOROQUINE SULFATE. [Suspect]
     Active Substance: HYDROXYCHLOROQUINE SULFATE
     Dosage: UNK
     Route: 065
  110. DARIFENACIN HYDROBROMIDE. [Concomitant]
     Active Substance: DARIFENACIN HYDROBROMIDE
     Dosage: UNK
     Route: 065
  111. DEXAMETHASONE. [Concomitant]
     Active Substance: DEXAMETHASONE
     Dosage: UNK
     Route: 048
  112. DILAUDID [Concomitant]
     Active Substance: HYDROMORPHONE HYDROCHLORIDE
     Indication: ARTHRALGIA
     Dosage: 4.0 MILLIGRAM, 1 EVERY 1 DAYS
  113. DILAUDID [Concomitant]
     Active Substance: HYDROMORPHONE HYDROCHLORIDE
     Indication: ARTHRALGIA
     Dosage: 4.0 MILLIGRAM
     Route: 065
  114. KENALOG [Concomitant]
     Active Substance: TRIAMCINOLONE ACETONIDE
     Dosage: 40.0 MILLIGRAM
     Route: 065
  115. KINERET [Concomitant]
     Active Substance: ANAKINRA
     Dosage: 100.0 MILLIGRAM
     Route: 065
  116. LOPERAMIDE [Concomitant]
     Active Substance: LOPERAMIDE
     Dosage: 2.0 MILLIGRAM, 2 EVERY 1 DAYS
     Route: 065
  117. PANTOPRAZOLE SODIUM. [Concomitant]
     Active Substance: PANTOPRAZOLE SODIUM
     Dosage: UNK
  118. DARIFENACIN HYDROBROMIDE. [Concomitant]
     Active Substance: DARIFENACIN HYDROBROMIDE
     Indication: PRODUCT USED FOR UNKNOWN INDICATION
     Route: 065
  119. URISPAS [Concomitant]
     Active Substance: FLAVOXATE HYDROCHLORIDE
     Dosage: 200 MILLIGRAM
     Route: 065
  120. ACTEMRA [Suspect]
     Active Substance: TOCILIZUMAB
     Indication: RHEUMATOID ARTHRITIS
     Route: 065
  121. ENBREL [Suspect]
     Active Substance: ETANERCEPT
     Dosage: 25.0 MILLIGRAM
     Route: 065
  122. HUMIRA [Suspect]
     Active Substance: ADALIMUMAB
     Indication: RHEUMATOID ARTHRITIS
     Dosage: 40.0 MILLIGRAM, CYCLICAL
     Route: 058
  123. HUMIRA [Suspect]
     Active Substance: ADALIMUMAB
     Indication: RHEUMATOID ARTHRITIS
     Dosage: 40.0 MILLIGRAM
     Route: 058
  124. METHOTREXATE. [Suspect]
     Active Substance: METHOTREXATE
     Dosage: 25.0 MILLIGRAM, 1 EVERY 1 DAYS
     Route: 065
  125. ORENCIA [Suspect]
     Active Substance: ABATACEPT
     Dosage: 1 EVERY 1 DAYS
     Route: 042
  126. XELJANZ [Suspect]
     Active Substance: TOFACITINIB CITRATE
     Indication: PRODUCT USED FOR UNKNOWN INDICATION
     Route: 065
  127. ATIVAN [Concomitant]
     Active Substance: LORAZEPAM
     Dosage: 1.0 GRAM, EVERY 1 DAYS
     Route: 065
  128. ATIVAN [Concomitant]
     Active Substance: LORAZEPAM
     Dosage: UNK
     Route: 065
  129. ATIVAN [Concomitant]
     Active Substance: LORAZEPAM
     Dosage: UNK
  130. CORTISONE [Concomitant]
     Active Substance: CORTISONE
     Dosage: UNK
     Route: 014
  131. DESOXIMETASONE. [Concomitant]
     Active Substance: DESOXIMETASONE
     Indication: PRODUCT USED FOR UNKNOWN INDICATION
     Dosage: UNK
     Route: 030
  132. DESOXIMETASONE. [Concomitant]
     Active Substance: DESOXIMETASONE
     Indication: PRODUCT USED FOR UNKNOWN INDICATION
     Dosage: UNK
     Route: 030
  133. DESOXIMETASONE. [Concomitant]
     Active Substance: DESOXIMETASONE
     Dosage: UNK
     Route: 048
  134. DEXAMETHASONE. [Concomitant]
     Active Substance: DEXAMETHASONE
     Dosage: UNK
     Route: 065
  135. FUROSEMIDE. [Concomitant]
     Active Substance: FUROSEMIDE
     Dosage: 40.0 MILLIGRAM, 3 EVERY 1 DAYS
     Route: 065
  136. LEFLUNOMIDE. [Concomitant]
     Active Substance: LEFLUNOMIDE
  137. NORFLEX [Concomitant]
     Active Substance: ORPHENADRINE CITRATE
     Dosage: UNK

REACTIONS (30)
  - C-reactive protein abnormal [Not Recovered/Not Resolved]
  - C-reactive protein increased [Not Recovered/Not Resolved]
  - Drug intolerance [Not Recovered/Not Resolved]
  - Oral pain [Not Recovered/Not Resolved]
  - Herpes zoster [Not Recovered/Not Resolved]
  - Stomatitis [Not Recovered/Not Resolved]
  - Off label use [Not Recovered/Not Resolved]
  - Liver function test abnormal [Not Recovered/Not Resolved]
  - Arthritis [Not Recovered/Not Resolved]
  - Fibromyalgia [Not Recovered/Not Resolved]
  - Drug ineffective [Not Recovered/Not Resolved]
  - Rheumatoid arthritis [Not Recovered/Not Resolved]
  - Soft tissue swelling [Not Recovered/Not Resolved]
  - Tenderness [Not Recovered/Not Resolved]
  - Infection [Not Recovered/Not Resolved]
  - Peripheral swelling [Not Recovered/Not Resolved]
  - Contraindicated product administered [Not Recovered/Not Resolved]
  - Product use issue [Not Recovered/Not Resolved]
  - Drug hypersensitivity [Not Recovered/Not Resolved]
  - Joint swelling [Not Recovered/Not Resolved]
  - Therapeutic product effect incomplete [Not Recovered/Not Resolved]
  - Condition aggravated [Not Recovered/Not Resolved]
  - Swelling [Not Recovered/Not Resolved]
  - Anaemia [Not Recovered/Not Resolved]
  - Leukopenia [Not Recovered/Not Resolved]
  - Arthralgia [Not Recovered/Not Resolved]
  - Blood cholesterol increased [Not Recovered/Not Resolved]
  - Soft tissue disorder [Not Recovered/Not Resolved]
  - Synovitis [Not Recovered/Not Resolved]
  - Pneumonia viral [Not Recovered/Not Resolved]
